FAERS Safety Report 17050072 (Version 2)
Quarter: 2019Q4

REPORT INFORMATION
  Report Type: Report from Study
  Country: US (occurrence: US)
  Receive Date: 20191119
  Receipt Date: 20191203
  Transmission Date: 20200122
  Serious: Yes (Hospitalization)
  Sender: FDA-Public Use
  Company Number: US-ACTELION-A-NJ2019-196333

PATIENT
  Sex: Female
  Weight: 53.52 kg

DRUGS (3)
  1. VELETRI [Suspect]
     Active Substance: EPOPROSTENOL
     Dosage: UNK
     Route: 042
  2. ADCIRCA [Concomitant]
     Active Substance: TADALAFIL
  3. VELETRI [Suspect]
     Active Substance: EPOPROSTENOL
     Indication: PULMONARY ARTERIAL HYPERTENSION
     Dosage: 6.3 NG/KG, PER MIN
     Route: 042

REACTIONS (6)
  - Vomiting [Unknown]
  - Nausea [Unknown]
  - Ankle fracture [Unknown]
  - Decreased appetite [Unknown]
  - Pain in jaw [Unknown]
  - Headache [Unknown]
